FAERS Safety Report 25407910 (Version 4)
Quarter: 2025Q3

REPORT INFORMATION
  Report Type: Report from Study
  Country: EU (occurrence: EU)
  Receive Date: 20250606
  Receipt Date: 20250805
  Transmission Date: 20251020
  Serious: Yes (Hospitalization, Other)
  Sender: TAKEDA
  Company Number: EU-TAKEDA-2025TUS052578

PATIENT
  Age: 76 Year
  Sex: Female

DRUGS (13)
  1. TEDUGLUTIDE [Suspect]
     Active Substance: TEDUGLUTIDE
     Indication: Short-bowel syndrome
  2. TEDUGLUTIDE [Suspect]
     Active Substance: TEDUGLUTIDE
  3. TEDUGLUTIDE [Suspect]
     Active Substance: TEDUGLUTIDE
  4. TEDUGLUTIDE [Suspect]
     Active Substance: TEDUGLUTIDE
  5. MAGNESIUM [Concomitant]
     Active Substance: MAGNESIUM
     Indication: Supplementation therapy
     Dosage: 2250 MILLIGRAM, QD
  6. CALCIUM CARBONATE [Concomitant]
     Active Substance: CALCIUM CARBONATE
     Indication: Supplementation therapy
     Dosage: 1000 MILLIGRAM, QD
  7. SODIUM BICARBONATE [Concomitant]
     Active Substance: SODIUM BICARBONATE
     Indication: Supplementation therapy
     Dosage: 500 MILLIGRAM, BID
  8. Cebion [Concomitant]
     Indication: Supplementation therapy
  9. DEURSIL [Concomitant]
     Active Substance: URSODIOL
     Dosage: 450 MILLIGRAM, QD
  10. Ramipril/amlodipina/idroclorotiazide doc [Concomitant]
     Indication: Hypertension
     Dosage: 10 MILLIGRAM, QD
  11. BROTIZOLAM [Concomitant]
     Active Substance: BROTIZOLAM
     Indication: Insomnia
     Dosage: 0.25 MILLIGRAM, QD
  12. Adisterolo [Concomitant]
     Indication: Osteoporosis
     Dosage: UNK UNK, MONTHLY
  13. Dobetin [Concomitant]
     Indication: Supplementation therapy

REACTIONS (2)
  - Pericarditis [Recovered/Resolved]
  - Venous thrombosis [Recovered/Resolved]

NARRATIVE: CASE EVENT DATE: 20250501
